FAERS Safety Report 5744273-1 (Version None)
Quarter: 2008Q2

REPORT INFORMATION
  Report Type: 
  Country: None (occurrence: None)
  Receive Date: 20080520
  Receipt Date: 20080515
  Transmission Date: 20081010
  Serious: Yes (Hospitalization)
  Sender: FDA-Public Use
  Company Number: JP-MERCK-0805USA03223

PATIENT
  Age: 57 Year
  Sex: Male

DRUGS (3)
  1. ZETIA [Suspect]
     Indication: HYPERCHOLESTEROLAEMIA
     Route: 048
     Dates: start: 20080126, end: 20080226
  2. ATORVASTATIN CALCIUM [Concomitant]
     Indication: HYPERCHOLESTEROLAEMIA
     Route: 065
     Dates: end: 20080225
  3. ATORVASTATIN CALCIUM [Concomitant]
     Route: 065
     Dates: start: 20080226

REACTIONS (1)
  - RETINAL DETACHMENT [None]
